FAERS Safety Report 23559842 (Version 5)
Quarter: 2024Q2

REPORT INFORMATION
  Report Type: Spontaneous
  Country: US (occurrence: US)
  Receive Date: 20240223
  Receipt Date: 20240430
  Transmission Date: 20240716
  Serious: No
  Sender: FDA-Public Use
  Company Number: US-AMGEN-USASP2024037112

PATIENT
  Age: 55 Year
  Sex: Female

DRUGS (12)
  1. OTEZLA [Suspect]
     Active Substance: APREMILAST
     Indication: Psoriasis
     Dosage: 30 MILLIGRAM
     Route: 065
  2. RINVOQ [Suspect]
     Active Substance: UPADACITINIB
     Indication: Psoriasis
     Dosage: UNK UNK, QD
     Route: 048
     Dates: start: 202306
  3. RINVOQ [Suspect]
     Active Substance: UPADACITINIB
     Indication: Psoriatic arthropathy
  4. RINVOQ [Suspect]
     Active Substance: UPADACITINIB
     Indication: Drug therapy
  5. HUMIRA [Suspect]
     Active Substance: ADALIMUMAB
     Indication: Product used for unknown indication
     Dosage: UNK
     Route: 065
  6. METHOTREXATE [Concomitant]
     Active Substance: METHOTREXATE
  7. FOLIC ACID [Concomitant]
     Active Substance: FOLIC ACID
  8. VITAMIN D3 [Concomitant]
     Active Substance: CHOLECALCIFEROL
  9. PREDNISONE [Concomitant]
     Active Substance: PREDNISONE
  10. NAPROXEN [Concomitant]
     Active Substance: NAPROXEN
  11. OMEGA 3 [Concomitant]
     Active Substance: CAPSAICIN
  12. TYLENOL [Concomitant]
     Active Substance: ACETAMINOPHEN
     Dosage: UNK

REACTIONS (6)
  - Nausea [Unknown]
  - Vomiting [Unknown]
  - Headache [Unknown]
  - Adverse event [Unknown]
  - Psoriasis [Unknown]
  - Arthralgia [Unknown]
